FAERS Safety Report 4863153-7 (Version None)
Quarter: 2005Q4

REPORT INFORMATION
  Report Type: 
  Country: None (occurrence: None)
  Receive Date: 20051213
  Receipt Date: 20051202
  Transmission Date: 20060501
  Serious: No
  Sender: FDA-Public Use
  Company Number: 2005-02041

PATIENT
  Age: 36 Year
  Sex: Female

DRUGS (4)
  1. TUBERSOL [Suspect]
     Indication: TUBERCULIN TEST
     Dosage: I.D.
     Dates: start: 20051004
  2. ZYRTEC [Concomitant]
  3. SINGULAIR [Concomitant]
  4. BENADRYL [Concomitant]

REACTIONS (6)
  - CHEST PAIN [None]
  - DYSPNOEA [None]
  - ERYTHEMA [None]
  - INJECTION SITE URTICARIA [None]
  - RED BLOOD CELL COUNT DECREASED [None]
  - WHEEZING [None]
